FAERS Safety Report 9181471 (Version 1)
Quarter: 2013Q1

REPORT INFORMATION
  Report Type: Spontaneous
  Country: US (occurrence: None)
  Receive Date: 20120621
  Receipt Date: 20120621
  Transmission Date: 20140127
  Serious: Yes (Hospitalization, Other)
  Sender: FDA-Public Use
  Company Number: 032252

PATIENT
  Sex: Male
  Weight: 47.6 kg

DRUGS (1)
  1. CIMZIA [Suspect]
     Indication: CROHN^S DISEASE
     Dosage: ONCE A MONTH S.C.
     Dates: start: 20110721

REACTIONS (4)
  - Myocardial infarction [None]
  - Malaise [None]
  - Cardiac failure congestive [None]
  - Drug administration error [None]
